FAERS Safety Report 25005526 (Version 1)
Quarter: 2025Q1

REPORT INFORMATION
  Report Type: Spontaneous
  Country: CN (occurrence: CN)
  Receive Date: 20250224
  Receipt Date: 20250224
  Transmission Date: 20250409
  Serious: Yes (Hospitalization)
  Sender: GLAXOSMITHKLINE
  Company Number: CN-GLAXOSMITHKLINE-CN2025APC020288

PATIENT

DRUGS (1)
  1. LAMOTRIGINE [Suspect]
     Active Substance: LAMOTRIGINE
     Indication: Epilepsy
     Dosage: 50 MG, QD
     Route: 048
     Dates: start: 20250101, end: 20250125

REACTIONS (7)
  - Drug eruption [Recovering/Resolving]
  - Oropharyngeal pain [Recovering/Resolving]
  - Erythema [Recovering/Resolving]
  - Pruritus [Recovering/Resolving]
  - Oral mucosa erosion [Recovering/Resolving]
  - Rash [Recovering/Resolving]
  - Oral pain [Recovering/Resolving]

NARRATIVE: CASE EVENT DATE: 20250120
